FAERS Safety Report 21556043 (Version 2)
Quarter: 2022Q4

REPORT INFORMATION
  Report Type: Report from Study
  Country: ES (occurrence: ES)
  Receive Date: 20221104
  Receipt Date: 20221117
  Transmission Date: 20230112
  Serious: Yes (Hospitalization)
  Sender: FDA-Public Use
  Company Number: ES-BRISTOL-MYERS SQUIBB COMPANY-2022-128256

PATIENT
  Age: 70 Year
  Sex: Male
  Weight: 77 kg

DRUGS (13)
  1. AZACITIDINE [Suspect]
     Active Substance: AZACITIDINE
     Indication: Myelodysplastic syndrome
     Route: 058
     Dates: start: 20211129, end: 20220920
  2. ONDANSETRON IPS [ONDANSETRON] [Concomitant]
     Indication: Nausea
     Route: 065
     Dates: start: 20211129
  3. DIFLUCORTOLONE VALERATE [Concomitant]
     Active Substance: DIFLUCORTOLONE VALERATE
     Indication: Skin reaction
     Route: 065
     Dates: start: 20211203
  4. DEXCHLORPHENIRAMINE [Concomitant]
     Active Substance: DEXCHLORPHENIRAMINE
     Indication: Skin reaction
     Route: 065
     Dates: start: 20211203
  5. FAMOTIDINE AN [Concomitant]
     Indication: Abdominal discomfort
     Route: 065
     Dates: start: 20220311
  6. POSACONAZOLE EG [Concomitant]
     Indication: Antifungal prophylaxis
     Route: 065
     Dates: start: 20221010
  7. LEVOFLOXACIN [Concomitant]
     Active Substance: LEVOFLOXACIN
     Indication: Respiratory tract infection
     Route: 065
     Dates: start: 20221010
  8. VILDAGLIPTIN [Concomitant]
     Active Substance: VILDAGLIPTIN
     Indication: Type 2 diabetes mellitus
     Route: 065
  9. METFORMIN [Concomitant]
     Active Substance: METFORMIN HYDROCHLORIDE
     Indication: Type 2 diabetes mellitus
     Route: 065
  10. ACETAMINOPHEN [Concomitant]
     Active Substance: ACETAMINOPHEN
     Indication: Pain prophylaxis
     Route: 065
  11. POLYETHYLENE GLYCOLS [Concomitant]
     Active Substance: POLYETHYLENE GLYCOLS
     Indication: Constipation
     Route: 065
     Dates: start: 20221014, end: 20221016
  12. ACYCLOVIR [Concomitant]
     Active Substance: ACYCLOVIR
     Indication: Antiviral prophylaxis
     Route: 065
     Dates: start: 20220912, end: 20221021
  13. TIOTROPIUM BROMIDE [Concomitant]
     Active Substance: TIOTROPIUM BROMIDE
     Indication: Chronic obstructive pulmonary disease
     Dosage: 1 PUFF, 2/DAYS
     Route: 065
     Dates: start: 2021

REACTIONS (1)
  - Proctitis [Recovered/Resolved]

NARRATIVE: CASE EVENT DATE: 20221015
